FAERS Safety Report 8457445-2 (Version None)
Quarter: 2012Q2

REPORT INFORMATION
  Report Type: 
  Country: None (occurrence: None)
  Receive Date: 20120621
  Receipt Date: 20120614
  Transmission Date: 20120825
  Serious: Yes (Death, Hospitalization, Other)
  Sender: FDA-Public Use
  Company Number: US-MERCK-1206USA02657

PATIENT
  Age: 66 Year
  Sex: Female

DRUGS (2)
  1. FOSAMAX [Suspect]
     Route: 048
     Dates: start: 20050101, end: 20090101
  2. FOSAMAX [Suspect]
     Route: 048
     Dates: start: 20050101, end: 20090101

REACTIONS (4)
  - HEPATIC CIRRHOSIS [None]
  - HIP FRACTURE [None]
  - FEMUR FRACTURE [None]
  - RENAL FAILURE CHRONIC [None]
